FAERS Safety Report 4641733-1 (Version None)
Quarter: 2005Q2

REPORT INFORMATION
  Report Type: 
  Country: None (occurrence: None)
  Receive Date: 20050421
  Receipt Date: 20050404
  Transmission Date: 20051028
  Serious: Yes (Death, Hospitalization)
  Sender: FDA-Public Use
  Company Number: 2005PL000015

PATIENT
  Age: 65 Year
  Sex: Male

DRUGS (4)
  1. ZYLOPRIM [Suspect]
     Indication: GOUT
     Dosage: 300 MG; QD; PO
     Route: 048
     Dates: start: 20010615, end: 20021201
  2. ATGAM [Concomitant]
  3. IMMUNOGLOBULIN [Concomitant]
  4. CYCLOSPORINE [Concomitant]

REACTIONS (16)
  - APLASTIC ANAEMIA [None]
  - BACTERIAL SEPSIS [None]
  - BLOOD BILIRUBIN INCREASED [None]
  - CARDIOMEGALY [None]
  - CLOSTRIDIAL INFECTION [None]
  - ENTEROCOCCAL INFECTION [None]
  - FUNGAL INFECTION [None]
  - GENERAL PHYSICAL HEALTH DETERIORATION [None]
  - GRAM STAIN NEGATIVE [None]
  - LUNG INFILTRATION [None]
  - LUNG NEOPLASM [None]
  - PANCYTOPENIA [None]
  - PERICARDIAL HAEMORRHAGE [None]
  - PLEURISY [None]
  - PNEUMONITIS [None]
  - RENAL FAILURE [None]
